FAERS Safety Report 11916108 (Version 2)
Quarter: 2019Q2

REPORT INFORMATION
  Report Type: Report from Study
  Country: JP (occurrence: JP)
  Receive Date: 20160114
  Receipt Date: 20190624
  Transmission Date: 20190711
  Serious: Yes (Death, Other)
  Sender: FDA-Public Use
  Company Number: JP-FERRINGPH-2016FE00012

PATIENT

DRUGS (4)
  1. PROGESTERONE. [Suspect]
     Active Substance: PROGESTERONE
     Indication: ASSISTED FERTILISATION
     Dosage: 200 MG, DAILY
     Route: 064
     Dates: start: 20150724, end: 20150902
  2. LUTORAL [Concomitant]
     Active Substance: CHLORMADINONE ACETATE
     Indication: PREGNANCY
     Dosage: 6 MG, DAILY
     Route: 064
     Dates: start: 20150721, end: 20150902
  3. LUTINUS [Suspect]
     Active Substance: PROGESTERONE
     Indication: ASSISTED FERTILISATION
     Dosage: 200 MG, DAILY
     Route: 064
     Dates: start: 20150724, end: 20150902
  4. PROGYNOVA                          /00045401/ [Concomitant]
     Active Substance: ESTRADIOL VALERATE
     Indication: PREGNANCY
     Dosage: 4 MG, DAILY
     Route: 064
     Dates: start: 20150710, end: 20150902

REACTIONS (1)
  - Conjoined twins [Fatal]

NARRATIVE: CASE EVENT DATE: 20150902
